FAERS Safety Report 8067817-6 (Version None)
Quarter: 2012Q1

REPORT INFORMATION
  Report Type: 
  Country: None (occurrence: None)
  Receive Date: 20120124
  Receipt Date: 20120110
  Transmission Date: 20120608
  Serious: Yes (Hospitalization)
  Sender: FDA-Public Use
  Company Number: US-WATSON-2011-21493

PATIENT
  Sex: Female

DRUGS (1)
  1. MINOCYCLINE HCL [Suspect]
     Indication: ROSACEA
     Dosage: ONE CAP QD
     Route: 048
     Dates: start: 20110715, end: 20110804

REACTIONS (13)
  - UPPER RESPIRATORY FUNGAL INFECTION [None]
  - PAIN [None]
  - NIGHT SWEATS [None]
  - MALAISE [None]
  - OROPHARYNGEAL PAIN [None]
  - LEUKOPENIA [None]
  - FATIGUE [None]
  - DEPRESSED LEVEL OF CONSCIOUSNESS [None]
  - AGRANULOCYTOSIS [None]
  - PHARYNGITIS STREPTOCOCCAL [None]
  - THROAT LESION [None]
  - PHARYNGEAL EROSION [None]
  - PYREXIA [None]
